FAERS Safety Report 8837115 (Version 1)
Quarter: 2012Q4

REPORT INFORMATION
  Report Type: 
  Country: IN (occurrence: IN)
  Receive Date: 20121011
  Receipt Date: 20121011
  Transmission Date: 20130627
  Serious: Yes (Hospitalization)
  Sender: FDA-Public Use
  Company Number: PHHY2012IN088745

PATIENT
  Age: 62 Year
  Sex: Male

DRUGS (3)
  1. ONBREZ [Suspect]
     Indication: CHRONIC OBSTRUCTIVE PULMONARY DISEASE
     Dosage: 300 ug, UNK
     Dates: start: 20120104
  2. TIOVAN [Concomitant]
     Indication: LUNG DISORDER
  3. INSULIN [Concomitant]
     Indication: DIABETES MELLITUS

REACTIONS (2)
  - Asthma [Recovering/Resolving]
  - Diabetes mellitus [Recovering/Resolving]
